FAERS Safety Report 26215863 (Version 2)
Quarter: 2025Q4

REPORT INFORMATION
  Report Type: Spontaneous
  Country: EG (occurrence: EG)
  Receive Date: 20251231
  Receipt Date: 20251231
  Transmission Date: 20260117
  Serious: Yes (Other)
  Sender: HIKMA
  Company Number: EG-HIKMA PHARMACEUTICALS-EG-H14001-25-13858

PATIENT
  Age: 58 Year
  Sex: Male
  Weight: 55 kg

DRUGS (7)
  1. LEUCOVORIN CALCIUM [Suspect]
     Active Substance: LEUCOVORIN CALCIUM
     Indication: Metastatic gastric cancer
     Dosage: 320 MILLIGRAM, QOW (DAY 1, DAY 2 REPEATED EVERY 14 DAY)
  2. LEUCOVORIN CALCIUM [Suspect]
     Active Substance: LEUCOVORIN CALCIUM
     Dosage: 320 MILLIGRAM, QOW (DOSE 4) (DAY 1, DAY 2 REPEATED EVERY 14 DAY)
     Dates: start: 20251103
  3. OXALIPLATIN [Suspect]
     Active Substance: OXALIPLATIN
     Indication: Metastatic gastric cancer
     Dosage: 136 MILLIGRAM, QOW (ON DAY 1 REPEATED EVERY 14 DAY)
  4. OXALIPLATIN [Suspect]
     Active Substance: OXALIPLATIN
     Dosage: 136 MILLIGRAM, QOW (DOSE 4) (ON DAY 1 REPEATED EVERY 14 DAY)
     Dates: start: 20251103
  5. FLUOROURACIL [Suspect]
     Active Substance: FLUOROURACIL
     Indication: Metastatic gastric cancer
     Dosage: 1600 MILLIGRAM, QOW (DAY 1, DAY 2 REPEATED EVERY 14 DAY OVER 44 HOURS)
  6. FLUOROURACIL [Suspect]
     Active Substance: FLUOROURACIL
     Dosage: 1600 MILLIGRAM, QOW (DOSE 4) (DAY 1, DAY 2 REPEATED EVERY 14 DAY OVER 44 HOURS)
     Dates: start: 20251103
  7. COXRITOR [Concomitant]
     Indication: Arthritis
     Dosage: 90 MILLIGRAM
     Route: 065

REACTIONS (1)
  - Normochromic normocytic anaemia [Recovered/Resolved]

NARRATIVE: CASE EVENT DATE: 20251115
